FAERS Safety Report 18693568 (Version 1)
Quarter: 2021Q1

REPORT INFORMATION
  Report Type: Spontaneous
  Country: PT (occurrence: PT)
  Receive Date: 20210104
  Receipt Date: 20210104
  Transmission Date: 20210419
  Serious: Yes (Other)
  Sender: FDA-Public Use
  Company Number: PT-CELLTRION INC.-2020PT034659

PATIENT

DRUGS (6)
  1. RITUXIMAB (UNKNOWN) [Suspect]
     Active Substance: RITUXIMAB
     Dosage: UNK UNK, CYCLIC (DOSE 2)
  2. RITUXIMAB (UNKNOWN) [Suspect]
     Active Substance: RITUXIMAB
     Dosage: UNK UNK, CYCLIC (DOSE 6)
  3. RITUXIMAB (UNKNOWN) [Suspect]
     Active Substance: RITUXIMAB
     Dosage: UNK UNK, CYCLIC (DOSE 3)
  4. RITUXIMAB (UNKNOWN) [Suspect]
     Active Substance: RITUXIMAB
     Dosage: UNK UNK, CYCLIC (DOSE 5)
  5. RITUXIMAB (UNKNOWN) [Suspect]
     Active Substance: RITUXIMAB
     Indication: BURKITT^S LYMPHOMA STAGE IV
     Dosage: UNK UNK, CYCLIC (DOSE 1)
  6. RITUXIMAB (UNKNOWN) [Suspect]
     Active Substance: RITUXIMAB
     Dosage: UNK UNK, CYCLIC (DOSE 4)

REACTIONS (8)
  - Febrile neutropenia [Unknown]
  - Bacteraemia [Unknown]
  - Mucosal inflammation [Unknown]
  - Pneumonitis [Unknown]
  - Respiratory tract infection [Unknown]
  - Tonsillitis [Unknown]
  - Febrile infection [Unknown]
  - Herpes zoster [Unknown]
